FAERS Safety Report 9140273 (Version 1)
Quarter: 2013Q1

REPORT INFORMATION
  Report Type: Spontaneous
  Country: US (occurrence: US)
  Receive Date: 20130305
  Receipt Date: 20130305
  Transmission Date: 20140127
  Serious: Yes (Death, Disabling)
  Sender: FDA-Public Use
  Company Number: US-MUTUAL PHARMACEUTICAL COMPANY, INC.-MTCD20130028

PATIENT
  Sex: Female

DRUGS (4)
  1. METOCLOPRAMIDE [Suspect]
     Indication: ABDOMINAL DISTENSION
     Route: 065
  2. METOCLOPRAMIDE [Suspect]
     Indication: DYSPEPSIA
  3. REGLAN [Suspect]
     Indication: ABDOMINAL DISTENSION
     Route: 065
  4. REGLAN [Suspect]
     Indication: DYSPEPSIA

REACTIONS (3)
  - Death [None]
  - Unevaluable event [None]
  - Tardive dyskinesia [None]
